FAERS Safety Report 22389617 (Version 1)
Quarter: 2023Q2

REPORT INFORMATION
  Report Type: Spontaneous
  Country: US (occurrence: None)
  Receive Date: 20230530
  Receipt Date: 20230530
  Transmission Date: 20230721
  Serious: Yes (Disabling)
  Sender: FDA-Public Use
  Company Number: None

PATIENT
  Age: 63 Year
  Sex: Female
  Weight: 80.1 kg

DRUGS (1)
  1. MOXIFLOXACIN OPHTHALMIC [Suspect]
     Active Substance: MOXIFLOXACIN HYDROCHLORIDE
     Indication: Infection prophylaxis
     Dosage: OTHER QUANTITY : 1 DROP(S);?FREQUENCY : 4 TIMES A DAY;?
     Route: 047
     Dates: start: 20220207, end: 20220415

REACTIONS (2)
  - Anosmia [None]
  - Ageusia [None]

NARRATIVE: CASE EVENT DATE: 20220321
